FAERS Safety Report 23693019 (Version 1)
Quarter: 2024Q1

REPORT INFORMATION
  Report Type: Spontaneous
  Country: US (occurrence: None)
  Receive Date: 20240330
  Receipt Date: 20240330
  Transmission Date: 20240410
  Serious: No
  Sender: FDA-Public Use
  Company Number: None

PATIENT
  Age: 60 Year
  Sex: Female
  Weight: 108 kg

DRUGS (2)
  1. FARXIGA [Suspect]
     Active Substance: DAPAGLIFLOZIN PROPANEDIOL
     Indication: Diabetes mellitus
     Dates: start: 20230513, end: 20230513
  2. 2 Detetics [Concomitant]

REACTIONS (8)
  - Tremor [None]
  - Pain in extremity [None]
  - Arthralgia [None]
  - Back pain [None]
  - Gait inability [None]
  - Chills [None]
  - Feeling cold [None]
  - Hypersomnia [None]

NARRATIVE: CASE EVENT DATE: 20230513
